FAERS Safety Report 8203021-6 (Version None)
Quarter: 2012Q1

REPORT INFORMATION
  Report Type: 
  Country: None (occurrence: None)
  Receive Date: 20120312
  Receipt Date: 20120308
  Transmission Date: 20120608
  Serious: Yes (Hospitalization)
  Sender: FDA-Public Use
  Company Number: US-MEDIMMUNE-MEDI-0015130

PATIENT
  Sex: Male
  Weight: 3.814 kg

DRUGS (7)
  1. VACCINES [Concomitant]
     Dates: start: 20120122, end: 20120122
  2. VACCINES [Concomitant]
     Dates: start: 20120206, end: 20120206
  3. ALBUTEROL [Concomitant]
  4. SYNAGIS [Suspect]
     Route: 030
     Dates: start: 20120122, end: 20120202
  5. SPIRONOLACTONE [Concomitant]
  6. CHLOROTHIAZIDE [Concomitant]
  7. POLY VI SOL [Concomitant]

REACTIONS (2)
  - NASOPHARYNGITIS [None]
  - ASTHMA [None]
